FAERS Safety Report 6809689-0 (Version None)
Quarter: 2010Q2

REPORT INFORMATION
  Report Type: 
  Country: None (occurrence: None)
  Receive Date: 20100630
  Receipt Date: 20100622
  Transmission Date: 20101027
  Serious: Yes (Hospitalization)
  Sender: FDA-Public Use
  Company Number: FR-PFIZER INC-2010077593

PATIENT
  Age: 68 Year
  Sex: Male

DRUGS (8)
  1. TAHOR [Suspect]
     Dosage: 80 MG, 1X/DAY
     Route: 048
     Dates: end: 20100422
  2. FUCIDINE [Interacting]
     Dosage: 500 MG, 3X/DAY
     Route: 042
     Dates: start: 20091230, end: 20100422
  3. OFLOCET [Concomitant]
     Dosage: 200 MG, 2X/DAY
     Route: 042
     Dates: start: 20091230, end: 20100422
  4. NEXIUM [Concomitant]
     Dosage: 20 MG, 1X/DAY
     Route: 048
  5. CARDENSIEL [Concomitant]
     Dosage: 1.25 MG, 1X/DAY
     Route: 048
  6. KARDEGIC [Concomitant]
     Dosage: 75 MG, 1X/DAY
     Route: 048
  7. CALCIPARINE [Concomitant]
     Dosage: 1 DF, 2X/DAY
     Route: 058
  8. INSULIN [Concomitant]
     Route: 042

REACTIONS (4)
  - DRUG INTERACTION [None]
  - RENAL FAILURE [None]
  - RESPIRATORY ACIDOSIS [None]
  - RHABDOMYOLYSIS [None]
